FAERS Safety Report 24829295 (Version 2)
Quarter: 2025Q1

REPORT INFORMATION
  Report Type: Other
  Country: PT (occurrence: PT)
  Receive Date: 20250110
  Receipt Date: 20250130
  Transmission Date: 20250409
  Serious: Yes (Hospitalization)
  Sender: ANI
  Company Number: PT-ANIPHARMA-015337

PATIENT
  Age: 22 Year
  Sex: Male

DRUGS (6)
  1. IBUPROFEN [Suspect]
     Active Substance: IBUPROFEN
     Indication: Sickle cell anaemia with crisis
  2. DIPYRONE [Concomitant]
     Active Substance: DIPYRONE
     Indication: Sickle cell anaemia with crisis
  3. FOLIC ACID [Concomitant]
     Active Substance: FOLIC ACID
     Indication: Sickle cell disease
  4. HYDROXYUREA [Concomitant]
     Active Substance: HYDROXYUREA
     Indication: Sickle cell disease
  5. MORPHINE [Concomitant]
     Active Substance: MORPHINE
     Indication: Analgesic therapy
  6. FOLIC ACID [Concomitant]
     Active Substance: FOLIC ACID
     Indication: Heart disease congenital

REACTIONS (2)
  - Drug ineffective [Unknown]
  - Intentional product misuse [Unknown]
